FAERS Safety Report 6197007-3 (Version None)
Quarter: 2009Q2

REPORT INFORMATION
  Report Type: 
  Country: None (occurrence: None)
  Receive Date: 20090520
  Receipt Date: 20090408
  Transmission Date: 20091009
  Serious: Yes (Hospitalization)
  Sender: FDA-Public Use
  Company Number: SE-PFIZER INC-2009194856

PATIENT
  Age: 39 Year

DRUGS (2)
  1. LYRICA [Suspect]
     Indication: PANIC DISORDER
     Dosage: 75 MG, 2X/DAY
  2. LYRICA [Suspect]
     Indication: GENERALISED ANXIETY DISORDER

REACTIONS (10)
  - AMNESIA [None]
  - GAIT DISTURBANCE [None]
  - INSOMNIA [None]
  - MALAISE [None]
  - NAUSEA [None]
  - PANIC ATTACK [None]
  - SENSATION OF HEAVINESS [None]
  - SPEECH DISORDER [None]
  - TREMOR [None]
  - WITHDRAWAL SYNDROME [None]
